FAERS Safety Report 11679930 (Version 3)
Quarter: 2015Q4

REPORT INFORMATION
  Report Type: Spontaneous
  Country: US (occurrence: US)
  Receive Date: 20151027
  Receipt Date: 20151110
  Transmission Date: 20160304
  Serious: No
  Sender: FDA-Public Use
  Company Number: US-ELI_LILLY_AND_COMPANY-US201008000670

PATIENT
  Age: 74 Year
  Sex: Female
  Weight: 45.35 kg

DRUGS (10)
  1. AUGMENTIN [Concomitant]
     Active Substance: AMOXICILLIN\CLAVULANATE POTASSIUM
  2. FORTEO [Suspect]
     Active Substance: TERIPARATIDE
     Dosage: 20 UG, DAILY (1/D)
  3. FORTEO [Suspect]
     Active Substance: TERIPARATIDE
     Dosage: 20 UG, DAILY (1/D)
  4. FORTEO [Suspect]
     Active Substance: TERIPARATIDE
     Dosage: 20 UG, DAILY (1/D)
  5. FORTEO [Suspect]
     Active Substance: TERIPARATIDE
     Dosage: 20 UG, QD
  6. VIOXX [Concomitant]
     Active Substance: ROFECOXIB
  7. FORTEO [Suspect]
     Active Substance: TERIPARATIDE
     Indication: OSTEOPOROSIS
     Dosage: 20 UG, DAILY (1/D)
     Dates: start: 20100526
  8. FORTEO [Suspect]
     Active Substance: TERIPARATIDE
     Dosage: 20 UG, DAILY (1/D)
  9. FORTEO [Suspect]
     Active Substance: TERIPARATIDE
     Dosage: 20 UG, QD
     Route: 065
  10. FORTEO [Suspect]
     Active Substance: TERIPARATIDE
     Dosage: 20 UG, QD

REACTIONS (30)
  - Abdominal distension [Unknown]
  - Arthropathy [Not Recovered/Not Resolved]
  - Pain in extremity [Not Recovered/Not Resolved]
  - Mood swings [Unknown]
  - Pain in jaw [Unknown]
  - Weight increased [Not Recovered/Not Resolved]
  - Pain [Not Recovered/Not Resolved]
  - Sinus headache [Unknown]
  - Abdominal discomfort [Unknown]
  - Hypoacusis [Not Recovered/Not Resolved]
  - Memory impairment [Unknown]
  - Weight fluctuation [Unknown]
  - Headache [Unknown]
  - Arthropathy [Unknown]
  - Speech disorder [Unknown]
  - Musculoskeletal discomfort [Not Recovered/Not Resolved]
  - Discomfort [Unknown]
  - Insomnia [Unknown]
  - Arthralgia [Unknown]
  - Arthritis [Not Recovered/Not Resolved]
  - Polyarthritis [Unknown]
  - Abdominal tenderness [Unknown]
  - Nervousness [Not Recovered/Not Resolved]
  - Agitation [Unknown]
  - Psychomotor hyperactivity [Unknown]
  - Rotator cuff syndrome [Unknown]
  - Balance disorder [Unknown]
  - Anxiety [Unknown]
  - Nasopharyngitis [Unknown]
  - Aggression [Unknown]

NARRATIVE: CASE EVENT DATE: 201009
